FAERS Safety Report 4806939-7 (Version None)
Quarter: 2005Q4

REPORT INFORMATION
  Report Type: 
  Country: None (occurrence: None)
  Receive Date: 20051019
  Receipt Date: 20051004
  Transmission Date: 20060501
  Serious: Yes (Other)
  Sender: FDA-Public Use
  Company Number: US_0504115820

PATIENT
  Age: 2 Year
  Sex: Male

DRUGS (3)
  1. STRATTERA [Suspect]
     Indication: ATTENTION DEFICIT/HYPERACTIVITY DISORDER
     Dosage: 18 MG/1 DAY
     Dates: start: 20050101, end: 20050301
  2. RISPERIDONE [Concomitant]
  3. MELLARIL [Concomitant]

REACTIONS (17)
  - ACHOLIA [None]
  - ALANINE AMINOTRANSFERASE INCREASED [None]
  - ANOREXIA [None]
  - ASPARTATE AMINOTRANSFERASE INCREASED [None]
  - BLOOD ALKALINE PHOSPHATASE INCREASED [None]
  - BLOOD LACTATE DEHYDROGENASE INCREASED [None]
  - CHOLURIA [None]
  - CHROMATURIA [None]
  - CULTURE STOOL POSITIVE [None]
  - DEHYDRATION [None]
  - ESCHERICHIA INFECTION [None]
  - HEPATOMEGALY [None]
  - LYMPHOCYTE PERCENTAGE INCREASED [None]
  - NAUSEA [None]
  - PLATELET COUNT INCREASED [None]
  - POISONING [None]
  - VOMITING [None]
